FAERS Safety Report 5484612-2 (Version None)
Quarter: 2007Q4

REPORT INFORMATION
  Report Type: 
  Country: None (occurrence: None)
  Receive Date: 20071012
  Receipt Date: 20071003
  Transmission Date: 20080405
  Serious: Yes (Hospitalization)
  Sender: FDA-Public Use
  Company Number: GR-PFIZER INC-2007072015

PATIENT
  Age: 58 Year
  Sex: Female
  Weight: 56.5 kg

DRUGS (3)
  1. MEDROL [Suspect]
     Indication: RHEUMATOID ARTHRITIS
     Route: 048
     Dates: start: 20060301, end: 20070501
  2. MEDROL [Suspect]
     Route: 048
  3. HUMIRA [Suspect]
     Indication: RHEUMATOID ARTHRITIS
     Route: 058
     Dates: start: 20070301, end: 20070601

REACTIONS (1)
  - PNEUMONIA LEGIONELLA [None]
